FAERS Safety Report 7623932-X (Version None)
Quarter: 2011Q3

REPORT INFORMATION
  Report Type: 
  Country: None (occurrence: None)
  Receive Date: 20110720
  Receipt Date: 20110715
  Transmission Date: 20111222
  Serious: No
  Sender: FDA-Public Use
  Company Number: US-PFIZER INC-2011124847

PATIENT
  Sex: Female

DRUGS (2)
  1. EFFEXOR XR [Suspect]
     Dosage: UNK
     Dates: end: 20100901
  2. VENLAFAXINE HCL [Suspect]
     Dosage: UNK
     Dates: start: 20100901

REACTIONS (2)
  - PARAESTHESIA [None]
  - MEDICATION RESIDUE [None]
